FAERS Safety Report 15497046 (Version 2)
Quarter: 2018Q4

REPORT INFORMATION
  Report Type: Report from Study
  Country: None (occurrence: US)
  Receive Date: 20181015
  Receipt Date: 20181121
  Transmission Date: 20190205
  Serious: Yes (Other)
  Sender: FDA-Public Use
  Company Number: US-ABBVIE-18S-163-2489855-00

PATIENT
  Age: 40 Year
  Sex: Female
  Weight: 72.64 kg

DRUGS (3)
  1. IRON [Concomitant]
     Active Substance: IRON
     Indication: ANAEMIA PROPHYLAXIS
  2. LUPRON DEPOT [Suspect]
     Active Substance: LEUPROLIDE ACETATE
     Indication: UTERINE LEIOMYOMA
     Route: 030
     Dates: start: 20180705
  3. NORETHINDRONE. [Concomitant]
     Active Substance: NORETHINDRONE
     Indication: PROPHYLAXIS

REACTIONS (11)
  - Menorrhagia [Not Recovered/Not Resolved]
  - Vaginal haemorrhage [Not Recovered/Not Resolved]
  - Dizziness [Not Recovered/Not Resolved]
  - Nausea [Not Recovered/Not Resolved]
  - Crying [Not Recovered/Not Resolved]
  - Vaginal haemorrhage [Not Recovered/Not Resolved]
  - Drug ineffective [Not Recovered/Not Resolved]
  - Insomnia [Not Recovered/Not Resolved]
  - Loss of consciousness [Recovered/Resolved]
  - Burning sensation [Recovered/Resolved]
  - Mobility decreased [Not Recovered/Not Resolved]

NARRATIVE: CASE EVENT DATE: 2018
